FAERS Safety Report 4937041-1 (Version None)
Quarter: 2006Q1

REPORT INFORMATION
  Report Type: 
  Country: None (occurrence: None)
  Receive Date: 20060309
  Receipt Date: 20060228
  Transmission Date: 20060701
  Serious: Yes (Death)
  Sender: FDA-Public Use
  Company Number: US-JNJFOC-20060300242

PATIENT
  Sex: Male
  Weight: 120.2 kg

DRUGS (2)
  1. REMICADE [Suspect]
     Indication: CROHN'S DISEASE
     Dosage: FOR 1 TO 1 1/2 YEARS
     Route: 042
  2. IMURAN [Concomitant]

REACTIONS (3)
  - MUSCLE TIGHTNESS [None]
  - MYOCARDIAL INFARCTION [None]
  - PARAESTHESIA [None]
